FAERS Safety Report 9503725 (Version 1)
Quarter: 2013Q1

REPORT INFORMATION
  Report Type: Spontaneous
  Country: US (occurrence: None)
  Receive Date: 20130107
  Receipt Date: 20130107
  Transmission Date: 20140127
  Serious: No
  Sender: FDA-Public Use
  Company Number: PHEH2012US020342

PATIENT
  Sex: Female
  Weight: 68 kg

DRUGS (1)
  1. GILENYA [Suspect]
     Indication: MULTIPLE SCLEROSIS
     Route: 048

REACTIONS (8)
  - Abnormal sensation in eye [None]
  - Peroneal nerve palsy [None]
  - Abdominal distension [None]
  - Menopausal symptoms [None]
  - Pain [None]
  - Fatigue [None]
  - Visual impairment [None]
  - Influenza [None]
